FAERS Safety Report 6599574-4 (Version None)
Quarter: 2010Q1

REPORT INFORMATION
  Report Type: 
  Country: None (occurrence: None)
  Receive Date: 20100224
  Receipt Date: 20100211
  Transmission Date: 20100710
  Serious: Yes (Death, Other)
  Sender: FDA-Public Use
  Company Number: US-ELI_LILLY_AND_COMPANY-US200912003771

PATIENT
  Sex: Female

DRUGS (8)
  1. ZYPREXA [Suspect]
     Indication: SCHIZOPHRENIA, PARANOID TYPE
     Dosage: 5 MG, DAILY (1/D)
     Dates: start: 20020101
  2. SURFAK [Concomitant]
  3. HALDOL [Concomitant]
     Dates: start: 20020101
  4. VITAMIN B-12 [Concomitant]
  5. SYNTHROID [Concomitant]
  6. CLONIDINE [Concomitant]
  7. IMDUR [Concomitant]
  8. VICODIN [Concomitant]

REACTIONS (3)
  - BREAST CANCER STAGE III [None]
  - INTESTINAL OBSTRUCTION [None]
  - NEOPLASM MALIGNANT [None]
